FAERS Safety Report 25455371 (Version 2)
Quarter: 2025Q3

REPORT INFORMATION
  Report Type: Spontaneous
  Country: CA (occurrence: CA)
  Receive Date: 20250619
  Receipt Date: 20250728
  Transmission Date: 20251020
  Serious: Yes (Other)
  Sender: CSL BEHRING
  Company Number: CA-BEH-2025209332

PATIENT
  Sex: Female

DRUGS (2)
  1. PRIVIGEN [Suspect]
     Active Substance: HUMAN IMMUNOGLOBULIN G
     Route: 042
  2. PRIVIGEN [Suspect]
     Active Substance: HUMAN IMMUNOGLOBULIN G
     Route: 065
     Dates: start: 20241209, end: 20241209

REACTIONS (8)
  - Chills [Recovered/Resolved]
  - Dyspnoea [Recovered/Resolved]
  - Hypoxia [Recovered/Resolved]
  - Oxygen therapy [Recovered/Resolved]
  - Pulmonary oedema [Recovered/Resolved]
  - Transfusion-related circulatory overload [Recovered/Resolved]
  - Pulmonary oedema [Unknown]
  - Lung infiltration [Unknown]

NARRATIVE: CASE EVENT DATE: 20241209
